FAERS Safety Report 6568775-3 (Version None)
Quarter: 2010Q1

REPORT INFORMATION
  Report Type: 
  Country: None (occurrence: None)
  Receive Date: 20100203
  Receipt Date: 20100127
  Transmission Date: 20100710
  Serious: Yes (Hospitalization, Disabling, Other)
  Sender: FDA-Public Use
  Company Number: ES-PFIZER INC-2009280102

PATIENT
  Age: 56 Year
  Sex: Male

DRUGS (1)
  1. CHAMPIX [Suspect]
     Indication: SMOKING CESSATION THERAPY
     Dosage: 1 MG, 2X/DAY
     Route: 048
     Dates: start: 20070226, end: 20070628

REACTIONS (6)
  - DIARRHOEA [None]
  - PSORIASIS [None]
  - PSORIATIC ARTHROPATHY [None]
  - RECTAL HAEMORRHAGE [None]
  - RECTAL POLYP [None]
  - WEIGHT DECREASED [None]
